FAERS Safety Report 7890260-7 (Version None)
Quarter: 2011Q4

REPORT INFORMATION
  Report Type: 
  Country: None (occurrence: None)
  Receive Date: 20111103
  Receipt Date: 20110801
  Transmission Date: 20120403
  Serious: No
  Sender: FDA-Public Use
  Company Number: US-AMGEN-USASP2011016750

PATIENT
  Age: 47 Year
  Sex: Female

DRUGS (2)
  1. ENBREL [Suspect]
     Indication: RHEUMATOID ARTHRITIS
     Dosage: 50 MG, QWK
     Dates: start: 20110315
  2. METHOTREXATE [Concomitant]
     Dates: start: 20110301

REACTIONS (4)
  - FATIGUE [None]
  - NAUSEA [None]
  - CONSTIPATION [None]
  - FUNGAL INFECTION [None]
